FAERS Safety Report 23440707 (Version 1)
Quarter: 2024Q1

REPORT INFORMATION
  Report Type: Spontaneous
  Country: US (occurrence: US)
  Receive Date: 20240125
  Receipt Date: 20240125
  Transmission Date: 20240410
  Serious: Yes (Other)
  Sender: FDA-Public Use
  Company Number: US-STRIDES ARCOLAB LIMITED-2023SP012575

PATIENT
  Age: 36 Year
  Sex: Female

DRUGS (6)
  1. DOXYCYCLINE [Suspect]
     Active Substance: DOXYCYCLINE
     Indication: Eczema
     Dosage: 50 MILLIGRAM, BID (TWICE A DAY)
     Route: 048
  2. DOXYCYCLINE [Suspect]
     Active Substance: DOXYCYCLINE
     Indication: Eczema
  3. CETIRIZINE [Suspect]
     Active Substance: CETIRIZINE HYDROCHLORIDE
     Indication: Pruritus
     Dosage: UNK
     Route: 065
  4. BETAMETHASONE [Suspect]
     Active Substance: BETAMETHASONE\BETAMETHASONE DIPROPIONATE
     Indication: Pruritus
     Dosage: UNK
     Route: 061
  5. NIACINAMIDE [Suspect]
     Active Substance: NIACINAMIDE
     Indication: Eczema
     Dosage: 500 MILLIGRAM, BID (TWICE DAY)
     Route: 048
  6. NIACINAMIDE [Suspect]
     Active Substance: NIACINAMIDE
     Indication: Eczema

REACTIONS (2)
  - Drug ineffective for unapproved indication [Unknown]
  - Therapy partial responder [Unknown]
